FAERS Safety Report 11771231 (Version 9)
Quarter: 2019Q4

REPORT INFORMATION
  Report Type: Spontaneous
  Country: US (occurrence: US)
  Receive Date: 20151124
  Receipt Date: 20191107
  Transmission Date: 20200122
  Serious: Yes (Death, Hospitalization, Other)
  Sender: FDA-Public Use
  Company Number: US-PFIZER INC-2015386470

PATIENT
  Age: 66 Year
  Sex: Female
  Weight: 82 kg

DRUGS (8)
  1. IBRANCE [Suspect]
     Active Substance: PALBOCICLIB
     Dosage: 125 MG, CYCLIC (1-21 Q 28 DAYS)
     Route: 048
     Dates: start: 20151022
  2. IBRANCE [Suspect]
     Active Substance: PALBOCICLIB
     Indication: BREAST CANCER METASTATIC
     Dosage: 125 MG, QD, CYCLIC (DAY 1-21 EVERY 28 DAYS)
     Route: 048
     Dates: start: 20151019
  3. IBRANCE [Suspect]
     Active Substance: PALBOCICLIB
     Dosage: UNK
  4. IBRANCE [Suspect]
     Active Substance: PALBOCICLIB
     Dosage: UNK
  5. IBRANCE [Suspect]
     Active Substance: PALBOCICLIB
     Dosage: 100 MG, CYCLIC (D1-21 Q 28 DAYS)
     Route: 048
     Dates: end: 20190825
  6. LISINOPRIL. [Concomitant]
     Active Substance: LISINOPRIL
     Indication: HYPERTENSION
     Dosage: UNK
  7. IBRANCE [Suspect]
     Active Substance: PALBOCICLIB
     Dosage: UNK
  8. ELIQUIS [Concomitant]
     Active Substance: APIXABAN
     Indication: THROMBOSIS
     Dosage: UNK

REACTIONS (16)
  - Condition aggravated [Unknown]
  - Dizziness [Unknown]
  - Nausea [Unknown]
  - Epistaxis [Unknown]
  - Sinus disorder [Unknown]
  - Fatigue [Unknown]
  - Alopecia [Unknown]
  - Balance disorder [Unknown]
  - Brain oedema [Fatal]
  - Gastrooesophageal reflux disease [Unknown]
  - Hydrocephalus [Fatal]
  - Neoplasm progression [Fatal]
  - Anaemia [Unknown]
  - Insomnia [Unknown]
  - Depression [Unknown]
  - Hypersensitivity [Unknown]

NARRATIVE: CASE EVENT DATE: 20160215
